FAERS Safety Report 22965358 (Version 5)
Quarter: 2024Q1

REPORT INFORMATION
  Report Type: Report from Study
  Country: CA (occurrence: CA)
  Receive Date: 20230921
  Receipt Date: 20240102
  Transmission Date: 20240410
  Serious: Yes (Other)
  Sender: FDA-Public Use
  Company Number: CA-JNJFOC-20230839261

PATIENT
  Age: 26 Year
  Sex: Male
  Weight: 65 kg

DRUGS (2)
  1. STELARA [Suspect]
     Active Substance: USTEKINUMAB
     Indication: Crohn^s disease
     Dosage: EXPIRATION DATE 01-FEB-2026. THE PATIENT RECEIVED INJECTION ON 19-OCT-2023 (3RD DOSE). THERAPY WAS A
     Route: 058
     Dates: start: 20211202
  2. STELARA [Suspect]
     Active Substance: USTEKINUMAB
     Dosage: EXPIRY DATE: 31-MAR-2026, 01-MAR-2026
     Route: 058

REACTIONS (12)
  - Haematochezia [Not Recovered/Not Resolved]
  - Weight decreased [Not Recovered/Not Resolved]
  - Constipation [Unknown]
  - Faeces soft [Unknown]
  - Decreased appetite [Unknown]
  - Chest pain [Unknown]
  - General physical health deterioration [Recovered/Resolved]
  - Abdominal pain [Unknown]
  - Diarrhoea [Unknown]
  - Drug ineffective [Unknown]
  - Inappropriate schedule of product administration [Unknown]
  - Off label use [Unknown]

NARRATIVE: CASE EVENT DATE: 20230801
